FAERS Safety Report 23538788 (Version 1)
Quarter: 2024Q1

REPORT INFORMATION
  Report Type: Spontaneous
  Country: US (occurrence: US)
  Receive Date: 20240219
  Receipt Date: 20240219
  Transmission Date: 20240410
  Serious: Yes (Hospitalization, Other)
  Sender: FDA-Public Use
  Company Number: US-SA-SAC20240216001165

PATIENT
  Sex: Female
  Weight: 51.7 kg

DRUGS (19)
  1. DUPIXENT [Suspect]
     Active Substance: DUPILUMAB
     Indication: Illness
     Dosage: 300 MG, QW
     Route: 058
  2. LEVOCETIRIZINE DIHYDROCHLORIDE [Concomitant]
     Active Substance: LEVOCETIRIZINE DIHYDROCHLORIDE
  3. ADAPALENE [Concomitant]
     Active Substance: ADAPALENE
  4. FLUOCINOLONE ACETONIDE [Concomitant]
     Active Substance: FLUOCINOLONE ACETONIDE
  5. BENZOYL PEROXIDE\CLINDAMYCIN [Concomitant]
     Active Substance: BENZOYL PEROXIDE\CLINDAMYCIN
  6. TRETINOIN [Concomitant]
     Active Substance: TRETINOIN
  7. DOXYCYCLINE HYCLATE [Concomitant]
     Active Substance: DOXYCYCLINE HYCLATE
  8. KETOCONAZOLE [Concomitant]
     Active Substance: KETOCONAZOLE
  9. HYOSCYAMINE SULFATE [Concomitant]
     Active Substance: HYOSCYAMINE SULFATE
  10. FLUTICASONE PROPIONATE HFA [Concomitant]
     Active Substance: FLUTICASONE PROPIONATE
  11. ATOMOXETINE HYDROCHLORIDE [Concomitant]
     Active Substance: ATOMOXETINE HYDROCHLORIDE
  12. DULOXETINE HYDROCHLORIDE [Concomitant]
     Active Substance: DULOXETINE HYDROCHLORIDE
  13. ONDANSETRON HYDROCHLORIDE [Concomitant]
     Active Substance: ONDANSETRON HYDROCHLORIDE
  14. NORETHINDRONE ACETATE [Concomitant]
     Active Substance: NORETHINDRONE ACETATE
  15. PROPRANOLOL HYDROCHLORIDE [Concomitant]
     Active Substance: PROPRANOLOL HYDROCHLORIDE
  16. MELOXICAM [Concomitant]
     Active Substance: MELOXICAM
     Dosage: UNK
  17. BUDESONIDE [Concomitant]
     Active Substance: BUDESONIDE
     Dosage: BUDESONIDE 160/4.5 INHALATION
  18. ALBUTEROL SULFATE [Concomitant]
     Active Substance: ALBUTEROL SULFATE
     Dosage: ALBUTEROL SULFATE INHALATION SOLUTION 3ML 0.0830/0
  19. LEVALBUTEROL [Concomitant]
     Active Substance: LEVALBUTEROL

REACTIONS (3)
  - Anaphylactic reaction [Unknown]
  - Swelling [Unknown]
  - Product dose omission issue [Unknown]
